FAERS Safety Report 7040203-3 (Version None)
Quarter: 2010Q4

REPORT INFORMATION
  Report Type: 
  Country: None (occurrence: None)
  Receive Date: 20101012
  Receipt Date: 20101004
  Transmission Date: 20110411
  Serious: Yes (Death)
  Sender: FDA-Public Use
  Company Number: CA-ABBOTT-10P-028-0675760-00

PATIENT
  Sex: Male
  Weight: 47.67 kg

DRUGS (1)
  1. LUPRON DEPOT [Suspect]
     Indication: PROSTATE CANCER
     Dates: start: 20070410, end: 20100706

REACTIONS (2)
  - CEREBROVASCULAR ACCIDENT [None]
  - MALIGNANT NEOPLASM PROGRESSION [None]
